FAERS Safety Report 5480712-1 (Version None)
Quarter: 2007Q4

REPORT INFORMATION
  Report Type: 
  Country: None (occurrence: None)
  Receive Date: 20071003
  Receipt Date: 20070923
  Transmission Date: 20080405
  Serious: Yes (Hospitalization)
  Sender: FDA-Public Use
  Company Number: CERZ-11789

PATIENT
  Age: 36 Year
  Sex: Female
  Weight: 108.6 kg

DRUGS (6)
  1. CEREZYME [Suspect]
     Indication: GAUCHER'S DISEASE
     Dosage: 92 U/KG Q2WKS IV
     Route: 042
  2. CEREZYME [Suspect]
     Indication: GAUCHER'S DISEASE
     Dosage: 92 U/KG Q2WKS IV
     Route: 042
     Dates: start: 20060916, end: 20070419
  3. CEREZYME [Suspect]
     Indication: GAUCHER'S DISEASE
     Dosage: 90 U/KG Q2WKS IV
     Route: 042
  4. CEREZYME [Suspect]
     Indication: GAUCHER'S DISEASE
     Dosage: 60 U/KG Q2WKS IV
     Route: 042
     Dates: start: 20040501
  5. CEREZYME [Suspect]
     Indication: GAUCHER'S DISEASE
     Dosage: 30 U/KG Q2WKS IV
     Route: 042
     Dates: start: 20031106, end: 20040501
  6. CEREZYME [Suspect]
     Indication: GAUCHER'S DISEASE
     Dates: start: 19970424, end: 20020101

REACTIONS (7)
  - BONE INFARCTION [None]
  - FALL [None]
  - HYPERGLYCAEMIA [None]
  - IMPAIRED HEALING [None]
  - MIGRAINE [None]
  - MOBILITY DECREASED [None]
  - PAIN [None]
